FAERS Safety Report 5787324 (Version 19)
Quarter: 2013Q3

REPORT INFORMATION
  Report Type: Spontaneous
  Country: US (occurrence: US)
  Receive Date: 20050503
  Receipt Date: 20130731
  Transmission Date: 20140515
  Serious: Yes (Death, Hospitalization, Other)
  Sender: FDA-Public Use
  Company Number: PHEH2005US04882

PATIENT
  Age: 74 Year
  Sex: Male
  Weight: 96.1 kg

DRUGS (29)
  1. ZOMETA [Suspect]
     Indication: METASTASES TO BONE
     Dosage: 4 MG Q21 DAYS
     Dates: start: 20030127, end: 20050107
  2. AREDIA [Suspect]
  3. GLUCOPHAGE [Concomitant]
     Dosage: 1 G, BID
     Dates: start: 2000
  4. NORVASC [Concomitant]
     Dosage: 5 MG, QD
     Dates: start: 2000
  5. MAXZIDE [Concomitant]
     Dosage: 37.5/25 MG, QD
     Dates: start: 2001
  6. MONOPRIL [Concomitant]
     Dosage: 40 MG, QD
     Dates: start: 2000
  7. ALOCRIL [Concomitant]
     Dosage: 2 %, UNK
     Dates: start: 2002
  8. GLUCOTROL XL [Concomitant]
     Dosage: 10 MG, UNK
     Dates: start: 2000
  9. PRANDIN [Concomitant]
     Dosage: 2 MG, UNK
     Dates: start: 2001
  10. METFORMIN HYDROCHLORIDE [Concomitant]
     Dosage: 1000 MG, UNK
     Dates: start: 2002
  11. PERCOCET [Concomitant]
     Dosage: 10/650 MG, UNK
     Dates: start: 2002
  12. DYNACIRC [Concomitant]
  13. OXYCONTIN [Concomitant]
  14. ATIVAN [Concomitant]
  15. VASOTEC [Concomitant]
  16. DULCOLAX [Concomitant]
  17. ZANTAC [Concomitant]
  18. DILAUDID [Concomitant]
  19. REGLAN                                  /USA/ [Concomitant]
  20. LANTUS [Concomitant]
  21. HUMALOG [Concomitant]
  22. MOTRIN [Concomitant]
  23. TYLENOL [Concomitant]
  24. ENALAPRIL [Concomitant]
  25. OXYCODONE [Concomitant]
  26. HYDROCHLOROTHIAZIDE [Concomitant]
  27. TRIAMTERENE [Concomitant]
  28. LASIX [Concomitant]
  29. HEPARIN [Concomitant]

REACTIONS (96)
  - Cystitis haemorrhagic [Recovering/Resolving]
  - Cyst [Unknown]
  - Confusional state [Unknown]
  - Memory impairment [Unknown]
  - Hypoaesthesia [Unknown]
  - Urinary incontinence [Unknown]
  - Phlebosclerosis [Unknown]
  - Pericardial effusion [Unknown]
  - Renal failure chronic [Unknown]
  - Cerebrovascular accident [Unknown]
  - Death [Fatal]
  - Osteonecrosis of jaw [Unknown]
  - Tooth disorder [Unknown]
  - Biopsy [Unknown]
  - Hyperplasia [Unknown]
  - Inflammation [Unknown]
  - Osteomyelitis [Unknown]
  - Toothache [Unknown]
  - Purulent discharge [Unknown]
  - Excessive granulation tissue [Unknown]
  - Tooth fracture [Unknown]
  - Malignant neoplasm progression [Not Recovered/Not Resolved]
  - Osteolysis [Unknown]
  - Monoclonal immunoglobulin present [Unknown]
  - Hyperviscosity syndrome [Unknown]
  - Extradural neoplasm [Unknown]
  - Compression fracture [Unknown]
  - Weight decreased [Unknown]
  - Thrombocytopenia [Unknown]
  - Gingival bleeding [Unknown]
  - Cerebellar atrophy [Unknown]
  - Renal failure acute [Unknown]
  - Metabolic acidosis [Unknown]
  - Epistaxis [Unknown]
  - Gastrooesophageal reflux disease [Unknown]
  - Throat tightness [Unknown]
  - Anaemia of malignant disease [Unknown]
  - Actinomycosis [Unknown]
  - Syncope [Unknown]
  - Eating disorder [Unknown]
  - Bone pain [Unknown]
  - Swelling [Unknown]
  - Hypoacusis [Unknown]
  - Back pain [Unknown]
  - Fall [Unknown]
  - Skin lesion [Unknown]
  - Prostatic specific antigen increased [Unknown]
  - Pancytopenia [Unknown]
  - Pain [Unknown]
  - Radiculopathy [Unknown]
  - Constipation [Unknown]
  - Spinal column stenosis [Unknown]
  - Abdominal discomfort [Unknown]
  - Asthenia [Unknown]
  - Decreased appetite [Unknown]
  - Cachexia [Unknown]
  - Faecaloma [Unknown]
  - Muscular weakness [Unknown]
  - Decubitus ulcer [Unknown]
  - Tinea infection [Unknown]
  - Musculoskeletal chest pain [Unknown]
  - Sinusitis [Unknown]
  - Spinal osteoarthritis [Unknown]
  - Cervical cord compression [Unknown]
  - Bone marrow disorder [Unknown]
  - Thyroid cyst [Unknown]
  - Road traffic accident [Unknown]
  - Contusion [Unknown]
  - Discomfort [Unknown]
  - Ligament sprain [Unknown]
  - Neck pain [Unknown]
  - Upper respiratory tract infection [Unknown]
  - Cough [Unknown]
  - Prostatism [Unknown]
  - Osteoarthritis [Unknown]
  - Herpes zoster [Recovering/Resolving]
  - Abdominal pain [Unknown]
  - Fatigue [Unknown]
  - Dyspnoea [Unknown]
  - Urinary hesitation [Unknown]
  - Micturition urgency [Unknown]
  - Pruritus [Unknown]
  - Malaise [Unknown]
  - Haematuria [Unknown]
  - Musculoskeletal discomfort [Unknown]
  - Arthralgia [Unknown]
  - Kyphosis [Unknown]
  - Gait disturbance [Unknown]
  - Mobility decreased [Unknown]
  - Dysphagia [Unknown]
  - Insomnia [Unknown]
  - Dysuria [Unknown]
  - Blood urea increased [Unknown]
  - Blood creatinine increased [Unknown]
  - Pneumonia [Unknown]
  - Pleural effusion [Unknown]
